FAERS Safety Report 25418483 (Version 2)
Quarter: 2025Q3

REPORT INFORMATION
  Report Type: Spontaneous
  Country: US (occurrence: US)
  Receive Date: 20250610
  Receipt Date: 20250715
  Transmission Date: 20251020
  Serious: Yes (Life-Threatening, Hospitalization, Other)
  Sender: RECKITT BENCKISER
  Company Number: US-INDIVIOR US-INDV-148881-2024

PATIENT

DRUGS (6)
  1. SUBOXONE [Suspect]
     Active Substance: BUPRENORPHINE HYDROCHLORIDE\NALOXONE HYDROCHLORIDE
     Indication: Drug use disorder
     Dosage: 12 MILLIGRAM, QD
     Route: 060
     Dates: start: 201401
  2. SUBOXONE [Suspect]
     Active Substance: BUPRENORPHINE HYDROCHLORIDE\NALOXONE HYDROCHLORIDE
     Dosage: 12 MILLIGRAM, QD
     Route: 060
     Dates: start: 20210505
  3. SUBOXONE [Suspect]
     Active Substance: BUPRENORPHINE HYDROCHLORIDE\NALOXONE HYDROCHLORIDE
     Indication: Drug use disorder
     Dosage: 8 MILLIGRAM, QD
     Route: 060
     Dates: start: 201209, end: 202105
  4. SUBOXONE [Suspect]
     Active Substance: BUPRENORPHINE HYDROCHLORIDE\NALOXONE HYDROCHLORIDE
     Indication: Drug use disorder
     Route: 060
     Dates: start: 201210, end: 2018
  5. BUPRENORPHINE\NALOXONE [Suspect]
     Active Substance: BUPRENORPHINE\NALOXONE
     Indication: Drug use disorder
     Dosage: 12 MILLIGRAM, QD
     Route: 060
     Dates: start: 202308
  6. BACTRIM DS [Suspect]
     Active Substance: SULFAMETHOXAZOLE\TRIMETHOPRIM
     Indication: Cellulitis
     Dosage: 1 TAB, Q12H
     Route: 048

REACTIONS (35)
  - Appendicitis [Recovered/Resolved]
  - Chronic obstructive pulmonary disease [Unknown]
  - Lumbosacral radiculopathy [Unknown]
  - Umbilical hernia [Recovered/Resolved]
  - Periumbilical abscess [Unknown]
  - Photokeratitis [Unknown]
  - Tooth abscess [Unknown]
  - Acute myocardial infarction [Unknown]
  - Anaphylactic reaction [Recovered/Resolved]
  - Cellulitis [Unknown]
  - Benign anorectal neoplasm [Unknown]
  - Lipid metabolism disorder [Unknown]
  - Skin lesion [Unknown]
  - Oral candidiasis [Unknown]
  - Lipoma [Unknown]
  - Vitreous floaters [Unknown]
  - Joint effusion [Unknown]
  - Nocturia [Unknown]
  - Micturition urgency [Unknown]
  - Amnesia [Unknown]
  - Dental caries [Not Recovered/Not Resolved]
  - Tooth erosion [Not Recovered/Not Resolved]
  - COVID-19 [Recovered/Resolved]
  - Bowel movement irregularity [Unknown]
  - Paraesthesia [Unknown]
  - Acute sinusitis [Unknown]
  - Blood pressure increased [Unknown]
  - Toothache [Recovered/Resolved]
  - Neck pain [Unknown]
  - Cough [Unknown]
  - Injury [Unknown]
  - Pain [Unknown]
  - Disturbance in attention [Unknown]
  - Depression [Unknown]
  - Anxiety [Unknown]

NARRATIVE: CASE EVENT DATE: 20150101
